FAERS Safety Report 5934948-3 (Version None)
Quarter: 2008Q4

REPORT INFORMATION
  Report Type: 
  Country: None (occurrence: None)
  Receive Date: 20081028
  Receipt Date: 20081017
  Transmission Date: 20090506
  Serious: Yes (Death)
  Sender: FDA-Public Use
  Company Number: 2008S1018850

PATIENT
  Age: 16 Year
  Sex: Male

DRUGS (2)
  1. AMNESTEEM [Suspect]
     Indication: ACNE
     Dosage: 40 MG;TWICE A DAY;ORAL; 40 MG; DAILY; ORAL
     Route: 048
     Dates: start: 20080501, end: 20080901
  2. AMNESTEEM [Suspect]
     Indication: ACNE
     Dosage: 40 MG;TWICE A DAY;ORAL; 40 MG; DAILY; ORAL
     Route: 048
     Dates: start: 20080901

REACTIONS (1)
  - COMPLETED SUICIDE [None]
